FAERS Safety Report 4315263-0 (Version None)
Quarter: 2004Q1

REPORT INFORMATION
  Report Type: 
  Country: None (occurrence: None)
  Receive Date: 20040309
  Receipt Date: 20040219
  Transmission Date: 20041129
  Serious: Yes (Life-Threatening, Hospitalization)
  Sender: FDA-Public Use
  Company Number: 2004IM000321

PATIENT
  Age: 27 Year
  Sex: Female

DRUGS (3)
  1. ADVAFERON (A643_INTERFERON ALFACON-1) [Suspect]
     Indication: HEPATITIS C
     Dosage: 18 MU; QD; SUBCUTANEOUS
     Route: 058
     Dates: start: 20031120
  2. URSODEOXYCHOLIC ACID [Concomitant]
  3. GLYCYRON [Concomitant]

REACTIONS (9)
  - BACILLUS INFECTION [None]
  - C-REACTIVE PROTEIN DECREASED [None]
  - CATHETER SITE RASH [None]
  - DECREASED APPETITE [None]
  - DEPRESSED MOOD [None]
  - FEELING HOT [None]
  - MENTAL DISORDER [None]
  - SEPSIS [None]
  - WHITE BLOOD CELL COUNT DECREASED [None]
